FAERS Safety Report 6088215-0 (Version None)
Quarter: 2009Q1

REPORT INFORMATION
  Report Type: 
  Country: None (occurrence: None)
  Receive Date: 20090224
  Receipt Date: 20090122
  Transmission Date: 20090719
  Serious: No
  Sender: FDA-Public Use
  Company Number: US-BAYER-200812172BCC

PATIENT
  Age: 62 Year
  Sex: Male
  Weight: 91 kg

DRUGS (3)
  1. ALEVE (CAPLET) [Suspect]
     Indication: HYPOAESTHESIA
     Dosage: TOTAL DAILY DOSE: 220 MG  UNIT DOSE: 220 MG
     Route: 048
     Dates: start: 19980101
  2. ALLERGY MEDICATION PATHMART BRAND [Concomitant]
  3. ONE-A-DAY MAXIMUM [Concomitant]
     Indication: MEDICAL DIET

REACTIONS (2)
  - CARPAL TUNNEL SYNDROME [None]
  - HYPOAESTHESIA [None]
